FAERS Safety Report 5252665-2 (Version None)
Quarter: 2007Q1

REPORT INFORMATION
  Report Type: 
  Country: None (occurrence: None)
  Receive Date: 20070301
  Receipt Date: 20061103
  Transmission Date: 20070707
  Serious: No
  Sender: FDA-Public Use
  Company Number: US-GLAXOSMITHKLINE-A0626189A

PATIENT
  Age: 53 Year
  Sex: Female

DRUGS (4)
  1. LAMICTAL [Suspect]
     Indication: BIPOLAR DISORDER
     Dosage: 100MG VARIABLE DOSE
     Route: 048
     Dates: start: 20030101
  2. ESTROGENS SOL/INJ [Concomitant]
  3. VISTARIL [Concomitant]
  4. ULTRAM [Concomitant]

REACTIONS (2)
  - DIPLOPIA [None]
  - MYALGIA [None]
